FAERS Safety Report 6749164-5 (Version None)
Quarter: 2010Q2

REPORT INFORMATION
  Report Type: 
  Country: None (occurrence: None)
  Receive Date: 20100601
  Receipt Date: 20100519
  Transmission Date: 20101027
  Serious: Yes (Other)
  Sender: FDA-Public Use
  Company Number: US-BAYER-201021891NA

PATIENT
  Age: 59 Year
  Sex: Female

DRUGS (2)
  1. BETASERON [Suspect]
     Indication: MULTIPLE SCLEROSIS
     Dosage: 1.5 YEARS
     Route: 058
     Dates: start: 19990101
  2. BETASERON [Suspect]
     Route: 058
     Dates: start: 20040101

REACTIONS (1)
  - HEPATIC CIRRHOSIS [None]
